FAERS Safety Report 18043639 (Version 1)
Quarter: 2020Q3

REPORT INFORMATION
  Report Type: Spontaneous
  Country: CN (occurrence: CN)
  Receive Date: 20200720
  Receipt Date: 20200720
  Transmission Date: 20201103
  Serious: Yes (Other)
  Sender: FDA-Public Use
  Company Number: CN-CELGENEUS-CHN-20200703824

PATIENT
  Age: 66 Year
  Sex: Male

DRUGS (6)
  1. ABRAXANE [Suspect]
     Active Substance: PACLITAXEL
     Indication: SMALL INTESTINE CARCINOMA
     Dosage: 200 MG (125 MILLIGRAM/SQ. METER)
     Route: 041
     Dates: start: 20190222, end: 20190301
  2. THALIDOMIDE [Suspect]
     Active Substance: THALIDOMIDE
     Indication: SMALL INTESTINE CARCINOMA
     Dosage: 100 MILLIGRAM
     Route: 048
     Dates: start: 20190222
  3. CISPLATIN. [Suspect]
     Active Substance: CISPLATIN
     Indication: SMALL INTESTINE CARCINOMA
     Dosage: 40 MG (75 MILLIGRAM/SQ. METER)
     Route: 041
     Dates: start: 20190222, end: 20190225
  4. THALIDOMIDE [Suspect]
     Active Substance: THALIDOMIDE
     Dosage: 150 MILLIGRAM
     Route: 048
     Dates: end: 20190307
  5. RECOMBINANT HUMAN GRANULOCYTE STIMULATING FACTOR [Concomitant]
     Indication: SYMPTOMATIC TREATMENT
     Dosage: 150 MICROGRAM
     Route: 065
     Dates: start: 20190224
  6. ABRAXANE [Suspect]
     Active Substance: PACLITAXEL
     Indication: OFF LABEL USE

REACTIONS (1)
  - Myelosuppression [Recovered/Resolved]

NARRATIVE: CASE EVENT DATE: 20190224
